FAERS Safety Report 18468681 (Version 1)
Quarter: 2020Q4

REPORT INFORMATION
  Report Type: Report from Study
  Country: US (occurrence: US)
  Receive Date: 20201105
  Receipt Date: 20201105
  Transmission Date: 20210114
  Serious: Yes (Hospitalization)
  Sender: FDA-Public Use
  Company Number: US-MYLANLABS-2020M1087740

PATIENT
  Age: 18 Year
  Sex: Female
  Weight: 44.2 kg

DRUGS (4)
  1. DACTINOMYCIN [Suspect]
     Active Substance: DACTINOMYCIN
     Indication: EMBRYONAL RHABDOMYOSARCOMA
     Dosage: 0.05 MILLIGRAM/KILOGRAM, CYCLE (OVER 1-5 MINUTES ON DAY 1 OF CYCLES 1 AND 3)
     Route: 042
  2. VINCRISTINE SULFATE. [Suspect]
     Active Substance: VINCRISTINE SULFATE
     Indication: EMBRYONAL RHABDOMYOSARCOMA
     Dosage: 1.5 MILLIGRAM/SQ. METER, CYCLE (OVER 1 MINUTE OR INFUSION VIA MINIBAG ON DAYS 1, 8, AND 15)
     Route: 042
  3. TEMSIROLIMUS. [Suspect]
     Active Substance: TEMSIROLIMUS
     Indication: EMBRYONAL RHABDOMYOSARCOMA
     Dosage: 15 MILLIGRAM/SQ. METER, CYCLE ((OVER 30-60 MINUTES ON DAYS 1, 8, AND 15)
     Route: 042
     Dates: start: 20200901, end: 20200901
  4. CYCLOPHOSPHAMIDE. [Suspect]
     Active Substance: CYCLOPHOSPHAMIDE
     Indication: EMBRYONAL RHABDOMYOSARCOMA
     Dosage: 1200 MILLIGRAM/SQ. METER, CYCLE (OVER 60 MINUTES ON DAY 1 OF CYCLES 1 AND 3)
     Route: 042

REACTIONS (3)
  - Colitis [Not Recovered/Not Resolved]
  - Alanine aminotransferase increased [Not Recovered/Not Resolved]
  - Stomatitis [Not Recovered/Not Resolved]

NARRATIVE: CASE EVENT DATE: 20200906
